FAERS Safety Report 19375478 (Version 1)
Quarter: 2021Q2

REPORT INFORMATION
  Report Type: Spontaneous
  Country: US (occurrence: US)
  Receive Date: 20210604
  Receipt Date: 20210604
  Transmission Date: 20210717
  Serious: No
  Sender: FDA-Public Use
  Company Number: US-ELI_LILLY_AND_COMPANY-US202104005766

PATIENT
  Sex: Female

DRUGS (2)
  1. VERZENIO [Suspect]
     Active Substance: ABEMACICLIB
     Dosage: 100 MG, BID
     Route: 048
     Dates: start: 202104
  2. VERZENIO [Suspect]
     Active Substance: ABEMACICLIB
     Indication: BREAST CANCER METASTATIC
     Dosage: 150 MG, BID
     Route: 048
     Dates: start: 202103, end: 202104

REACTIONS (10)
  - Weight decreased [Recovering/Resolving]
  - Vomiting [Recovered/Resolved]
  - Decreased appetite [Recovering/Resolving]
  - Asthenia [Not Recovered/Not Resolved]
  - Blood potassium decreased [Recovering/Resolving]
  - White blood cell count decreased [Recovering/Resolving]
  - Dehydration [Not Recovered/Not Resolved]
  - Diarrhoea [Recovered/Resolved]
  - Dry mouth [Not Recovered/Not Resolved]
  - Blood calcium decreased [Recovering/Resolving]
